FAERS Safety Report 9445405 (Version 3)
Quarter: 2014Q1

REPORT INFORMATION
  Report Type: Spontaneous
  Country: US (occurrence: US)
  Receive Date: 20130807
  Receipt Date: 20140205
  Transmission Date: 20141002
  Serious: No
  Sender: FDA-Public Use
  Company Number: US-PFIZER INC-2013226264

PATIENT
  Age: 63 Year
  Sex: Female
  Weight: 99.32 kg

DRUGS (1)
  1. SUTENT [Suspect]
     Indication: RENAL CANCER
     Dosage: 50 MG, ONCE DAILY (4 WEEKS ON/ 2 WEEKS OFF)
     Route: 048
     Dates: start: 20120907

REACTIONS (4)
  - Pain in extremity [Unknown]
  - Hypoaesthesia [Unknown]
  - Diarrhoea [Unknown]
  - Nausea [Unknown]
